FAERS Safety Report 23888996 (Version 2)
Quarter: 2024Q2

REPORT INFORMATION
  Report Type: Report from Study
  Country: KR (occurrence: KR)
  Receive Date: 20240523
  Receipt Date: 20240606
  Transmission Date: 20240716
  Serious: Yes (Other)
  Sender: FDA-Public Use
  Company Number: KR-TAKEDA-2024TUS050098

PATIENT
  Sex: Female

DRUGS (8)
  1. BRIGATINIB [Suspect]
     Active Substance: BRIGATINIB
     Indication: Non-small cell lung cancer
     Dosage: 90 MILLIGRAM, QD
     Route: 048
     Dates: start: 20220818, end: 20220901
  2. BRIGATINIB [Suspect]
     Active Substance: BRIGATINIB
     Dosage: 90 MILLIGRAM, QD
     Route: 048
     Dates: start: 20220904
  3. GASTER [Concomitant]
     Active Substance: FAMOTIDINE
     Indication: Gastrointestinal disorder
     Dosage: 40 MILLIGRAM
     Route: 048
     Dates: start: 20220818
  4. METOCLOPRAMIDE HYDROCHLORIDE [Concomitant]
     Active Substance: METOCLOPRAMIDE HYDROCHLORIDE
     Indication: Nausea
     Dosage: 15 MILLIGRAM
     Route: 048
     Dates: start: 20220818, end: 20231206
  5. KEPPRA [Concomitant]
     Active Substance: LEVETIRACETAM
     Indication: Seizure
     Dosage: 1000 MILLIGRAM
     Route: 048
     Dates: start: 20220821
  6. NEOPAT [Concomitant]
     Indication: Seizure
     Dosage: 100 MILLIGRAM
     Route: 048
     Dates: start: 20220902
  7. AMLODIPINE OROTATE [Concomitant]
     Active Substance: AMLODIPINE OROTATE
     Indication: Hypertension
     Dosage: 5 MILLIGRAM
     Route: 048
     Dates: start: 20220827
  8. LYRICA [Concomitant]
     Active Substance: PREGABALIN
     Indication: Seizure
     Dosage: 50 MILLIGRAM
     Route: 048
     Dates: start: 20231020

REACTIONS (1)
  - Optic neuropathy [Recovering/Resolving]

NARRATIVE: CASE EVENT DATE: 20231206
